FAERS Safety Report 12849349 (Version 1)
Quarter: 2016Q4

REPORT INFORMATION
  Report Type: Spontaneous
  Country: FR (occurrence: FR)
  Receive Date: 20161014
  Receipt Date: 20161014
  Transmission Date: 20170207
  Serious: Yes (Hospitalization)
  Sender: FDA-Public Use
  Company Number: FR-TEVA-699194ROM

PATIENT
  Sex: Male
  Weight: 94 kg

DRUGS (17)
  1. DIFFU K [Concomitant]
     Active Substance: POTASSIUM CHLORIDE
     Indication: HYPOKALAEMIA
     Dosage: 2 DOSAGE FORMS DAILY;
     Route: 048
  2. ATROPINE 1% FAURE [Concomitant]
     Indication: CATARACT
     Route: 047
  3. LANSOPRAZOLE MYLAN 30 MG [Concomitant]
     Indication: GASTROOESOPHAGEAL REFLUX DISEASE
     Dosage: 1 DOSAGE FORMS DAILY;
     Route: 048
  4. AZILECT [Suspect]
     Active Substance: RASAGILINE MESYLATE
     Indication: PARKINSON^S DISEASE
     Dosage: 1 DOSAGE FORMS DAILY;
     Route: 048
  5. MADOPAR LP 100/25 MG [Suspect]
     Active Substance: BENSERAZIDE HYDROCHLORIDE\LEVODOPA
     Indication: PARKINSON^S DISEASE
     Dosage: 1 DF DAILY (1 DF=100 MG LEVODOPA+25 MG BENSERAZIDE)
     Route: 048
  6. RIVASTIGMINE MYLAN PHARMA 4.6 MG/ 24 HOURS [Suspect]
     Active Substance: RIVASTIGMINE
     Indication: PARKINSON^S DISEASE
     Dosage: 1 DOSAGE FORMS DAILY;
     Route: 062
  7. CLOZAPINE MYLAN 25 MG [Suspect]
     Active Substance: CLOZAPINE
     Indication: PARKINSON^S DISEASE
     Dosage: 1.5 DOSAGE FORMS DAILY;
     Route: 048
     Dates: end: 20160916
  8. PYOSTACINE 500 MG [Concomitant]
     Active Substance: PRISTINAMYCIN
     Indication: ERYSIPELAS
     Dosage: 6 DOSAGE FORMS DAILY;
     Route: 048
     Dates: start: 20160912, end: 20160919
  9. XARELTO [Concomitant]
     Active Substance: RIVAROXABAN
     Indication: PHLEBITIS
     Dosage: 1 DOSAGE FORMS DAILY;
     Route: 048
  10. CEFTRIAXONE PANPHARMA 1 G [Concomitant]
     Indication: LUNG INFECTION
     Dosage: 2 DOSAGE FORMS DAILY;
     Route: 042
  11. STALEVO [Suspect]
     Active Substance: CARBIDOPA\ENTACAPONE\LEVODOPA
     Indication: PARKINSON^S DISEASE
     Dosage: 5 DF( 1 DF= 75 MG LEVODOPA, 18.75 MG CARBIDOPA, 200 MG ENTACAPONE)
     Route: 048
  12. RIVOTRIL [Suspect]
     Active Substance: CLONAZEPAM
     Indication: AGITATION
     Dosage: .5 MILLIGRAM DAILY;
     Route: 048
  13. APOKINON 0.5 % [Suspect]
     Active Substance: APOMORPHINE
     Indication: PARKINSON^S DISEASE
     Dosage: 150 MILLIGRAM DAILY;
     Route: 058
  14. MOVICOL [Concomitant]
     Active Substance: POLYETHYLENE GLYCOL 3350\POTASSIUM CHLORIDE\SODIUM BICARBONATE\SODIUM CHLORIDE
     Indication: CONSTIPATION
     Dosage: 2 DOSAGE FORMS DAILY;
     Route: 048
  15. TITANOREINE [Concomitant]
     Active Substance: CARRAGEENAN\TITANIUM\ZINC
     Indication: HAEMORRHOIDS
     Route: 054
  16. MIANSERIN ARROW [Suspect]
     Active Substance: MIANSERIN
     Indication: DEPRESSION
     Dosage: 1 DOSAGE FORMS DAILY;
     Route: 048
     Dates: start: 20160913
  17. TERBUTALINE ARROW 5 MG/2 ML [Concomitant]
     Indication: CHRONIC OBSTRUCTIVE PULMONARY DISEASE
     Route: 055

REACTIONS (2)
  - Pneumonia aspiration [None]
  - Neuroleptic malignant syndrome [Recovered/Resolved]

NARRATIVE: CASE EVENT DATE: 2016
